FAERS Safety Report 5597530-6 (Version None)
Quarter: 2008Q1

REPORT INFORMATION
  Report Type: 
  Country: None (occurrence: None)
  Receive Date: 20080116
  Receipt Date: 20080105
  Transmission Date: 20080703
  Serious: No
  Sender: FDA-Public Use
  Company Number: CC08-09

PATIENT
  Sex: Male

DRUGS (1)
  1. ALBUTEROL [Suspect]
     Indication: ASTHMA
     Dosage: 2 ACTUATIONS AS NEEDED

REACTIONS (3)
  - CYANOSIS [None]
  - LIP PAIN [None]
  - PHARMACEUTICAL PRODUCT COMPLAINT [None]
